FAERS Safety Report 9347102 (Version 1)
Quarter: 2013Q2

REPORT INFORMATION
  Report Type: Spontaneous
  Country: IT (occurrence: IT)
  Receive Date: 20130613
  Receipt Date: 20130613
  Transmission Date: 20140414
  Serious: Yes (Other)
  Sender: FDA-Public Use
  Company Number: IT-GLAXOSMITHKLINE-B0898184A

PATIENT
  Age: 19 Year
  Sex: Female

DRUGS (4)
  1. SEROXAT [Suspect]
     Indication: PRODUCT USED FOR UNKNOWN INDICATION
     Dosage: 400MG UNKNOWN
     Route: 048
     Dates: start: 20130423, end: 20130423
  2. SURMONTIL [Suspect]
     Indication: PRODUCT USED FOR UNKNOWN INDICATION
     Dosage: 40MG PER DAY
     Route: 048
     Dates: start: 20130423, end: 20130423
  3. TRILAFON [Suspect]
     Indication: PRODUCT USED FOR UNKNOWN INDICATION
     Dosage: 40MG PER DAY
     Route: 048
     Dates: start: 20130423, end: 20130423
  4. XANAX [Suspect]
     Indication: PRODUCT USED FOR UNKNOWN INDICATION
     Route: 065
     Dates: start: 20130423, end: 20130423

REACTIONS (2)
  - Confusional state [Recovering/Resolving]
  - Drug abuse [Recovering/Resolving]
